FAERS Safety Report 6816642-X (Version None)
Quarter: 2010Q3

REPORT INFORMATION
  Report Type: 
  Country: None (occurrence: None)
  Receive Date: 20100706
  Receipt Date: 20100622
  Transmission Date: 20110219
  Serious: Yes (Hospitalization)
  Sender: FDA-Public Use
  Company Number: US-JNJFOC-20100607899

PATIENT
  Sex: Male

DRUGS (3)
  1. CONCENTRATED TYLENOL INFANT DROPS [Suspect]
     Route: 048
  2. CONCENTRATED TYLENOL INFANT DROPS [Suspect]
     Indication: PYREXIA
     Route: 048
  3. BENADRYL [Suspect]
     Indication: HYPERSENSITIVITY

REACTIONS (6)
  - BACTERIAL INFECTION [None]
  - BREATH ODOUR [None]
  - HYPERSENSITIVITY [None]
  - PRODUCT QUALITY ISSUE [None]
  - PYREXIA [None]
  - VIRAL INFECTION [None]
